FAERS Safety Report 7546918-2 (Version None)
Quarter: 2011Q2

REPORT INFORMATION
  Report Type: 
  Country: None (occurrence: None)
  Receive Date: 20110614
  Receipt Date: 20110607
  Transmission Date: 20111010
  Serious: Yes (Other)
  Sender: FDA-Public Use
  Company Number: US-JNJFOC-20110308336

PATIENT
  Sex: Male
  Weight: 97.52 kg

DRUGS (3)
  1. INVEGA [Suspect]
     Indication: AFFECTIVE DISORDER
     Route: 048
     Dates: start: 20071201
  2. UNKNOWN MEDICATION [Concomitant]
     Route: 065
  3. INVEGA [Suspect]
     Indication: SCHIZOAFFECTIVE DISORDER
     Route: 048
     Dates: start: 20071201

REACTIONS (7)
  - OVERGROWTH BACTERIAL [None]
  - BLOOD CALCIUM INCREASED [None]
  - WEIGHT DECREASED [None]
  - DIARRHOEA [None]
  - IRRITABLE BOWEL SYNDROME [None]
  - RENAL IMPAIRMENT [None]
  - LOW DENSITY LIPOPROTEIN ABNORMAL [None]
